APPROVED DRUG PRODUCT: CARAFATE
Active Ingredient: SUCRALFATE
Strength: 1GM
Dosage Form/Route: TABLET;ORAL
Application: N018333 | Product #001 | TE Code: AB
Applicant: ABBVIE INC
Approved: Approved Prior to Jan 1, 1982 | RLD: Yes | RS: Yes | Type: RX